FAERS Safety Report 6380170-9 (Version None)
Quarter: 2009Q3

REPORT INFORMATION
  Report Type: 
  Country: None (occurrence: None)
  Receive Date: 20090929
  Receipt Date: 20090922
  Transmission Date: 20100115
  Serious: Yes (Hospitalization, Other)
  Sender: FDA-Public Use
  Company Number: US-JNJFOC-20090907282

PATIENT
  Sex: Male

DRUGS (13)
  1. FENTANYL TRANSDERMAL SYSTEM [Suspect]
     Indication: PAIN
     Route: 062
     Dates: start: 20070101
  2. REBIF [Suspect]
     Indication: MULTIPLE SCLEROSIS
     Route: 058
     Dates: start: 20060101
  3. MORPHINE [Suspect]
     Indication: PAIN
     Route: 042
  4. BACLOFEN [Suspect]
     Indication: PAIN
     Route: 042
  5. HYDROCODONE [Suspect]
     Indication: PAIN
     Route: 065
  6. PROZAC [Concomitant]
  7. CYMBALTA [Concomitant]
  8. LOVASTATIN [Concomitant]
  9. FUROSEMIDE [Concomitant]
  10. CLONIDINE [Concomitant]
  11. TEMAZEPAM [Concomitant]
  12. SULINDAC [Concomitant]
  13. METOPROLOL [Concomitant]

REACTIONS (3)
  - CONSTIPATION [None]
  - INAPPROPRIATE SCHEDULE OF DRUG ADMINISTRATION [None]
  - MULTIPLE SCLEROSIS [None]
